FAERS Safety Report 6307063-7 (Version None)
Quarter: 2009Q3

REPORT INFORMATION
  Report Type: 
  Country: None (occurrence: None)
  Receive Date: 20090812
  Receipt Date: 20090501
  Transmission Date: 20100115
  Serious: Yes (Other)
  Sender: FDA-Public Use
  Company Number: US-GENENTECH-282404

PATIENT
  Sex: Female

DRUGS (6)
  1. BEVACIZUMAB [Suspect]
     Indication: BREAST CANCER
     Dosage: 10 MG/KG, Q2W
     Route: 042
     Dates: start: 20060124
  2. DOXORUBICIN HCL [Suspect]
     Indication: BREAST CANCER
     Dosage: 60 MG/M2, Q2W
     Route: 042
  3. CYCLOPHOSPHAMIDE [Suspect]
     Indication: BREAST CANCER
     Dosage: 600 MG/M2, Q2W
     Route: 042
  4. NEUPOGEN [Suspect]
     Indication: BREAST CANCER
     Dosage: 5 A?G/KG, DAYS 2-11
     Route: 058
  5. PEGFILGRASTIM [Suspect]
     Indication: BREAST CANCER
     Dosage: 6 MG, UNK
     Route: 058
  6. PACLITAXEL [Suspect]
     Indication: BREAST CANCER
     Dosage: 175 MG/M2, UNK
     Route: 042

REACTIONS (3)
  - GLOSSITIS [None]
  - ORAL PAIN [None]
  - STOMATITIS [None]
